FAERS Safety Report 7434520-2 (Version None)
Quarter: 2011Q2

REPORT INFORMATION
  Report Type: 
  Country: None (occurrence: None)
  Receive Date: 20110425
  Receipt Date: 20110415
  Transmission Date: 20111010
  Serious: Yes (Death, Hospitalization, Other)
  Sender: FDA-Public Use
  Company Number: US-ABBOTT-10P-163-0628115-00

PATIENT
  Sex: Female

DRUGS (43)
  1. IRON [Concomitant]
     Indication: ANAEMIA
     Dates: end: 20100219
  2. TUMS [Concomitant]
     Indication: PRODUCT USED FOR UNKNOWN INDICATION
     Route: 048
     Dates: end: 20100219
  3. UNKNOWN MEDICATION [Concomitant]
     Indication: PRODUCT USED FOR UNKNOWN INDICATION
     Dosage: WITH DIALYSIS
     Route: 042
  4. NOVOLOG [Concomitant]
     Indication: DIABETES MELLITUS
     Route: 058
     Dates: end: 20100219
  5. SILVER SULFADIAZINE [Concomitant]
     Indication: SKIN ULCER
     Dosage: APPLY SMALL AMOUNT 1 CONTAINER TO AFFECTED AREA NIGHTLY
  6. OMEPRAZOLE [Concomitant]
     Indication: PRODUCT USED FOR UNKNOWN INDICATION
  7. SIMVASTATIN [Concomitant]
     Indication: PRODUCT USED FOR UNKNOWN INDICATION
     Dosage: NIGHTLY
     Route: 048
  8. DESLORATADINE [Concomitant]
     Route: 048
  9. DOCUSATE SODIUM [Concomitant]
     Indication: PRODUCT USED FOR UNKNOWN INDICATION
     Dosage: TAKE 2 EACH BY MOUTH
     Route: 048
  10. GLUCOSAMINE CHONDROITIN MAXSTR [Concomitant]
     Indication: PRODUCT USED FOR UNKNOWN INDICATION
     Route: 048
  11. HUMIRA [Suspect]
     Dates: start: 20090919, end: 20100219
  12. METOPROLOL [Concomitant]
     Indication: HYPERTENSION
     Dosage: DAILY
     Route: 048
     Dates: end: 20100219
  13. ZOCOR [Concomitant]
     Indication: PRODUCT USED FOR UNKNOWN INDICATION
     Dates: end: 20100219
  14. PREDNISONE [Concomitant]
     Route: 047
  15. VANCOMYCIN [Concomitant]
     Indication: PRODUCT USED FOR UNKNOWN INDICATION
     Route: 048
  16. PREDNISONE [Concomitant]
     Indication: PRODUCT USED FOR UNKNOWN INDICATION
     Dosage: DAILY
     Dates: end: 20100219
  17. DESLORATADINE [Concomitant]
     Indication: PRODUCT USED FOR UNKNOWN INDICATION
  18. RITALIN [Concomitant]
     Indication: PRODUCT USED FOR UNKNOWN INDICATION
     Route: 048
  19. TIGECYCLINE [Concomitant]
     Indication: PRODUCT USED FOR UNKNOWN INDICATION
     Route: 042
  20. HUMIRA [Suspect]
     Indication: RHEUMATOID ARTHRITIS
     Dates: start: 20090808, end: 20090919
  21. LANTUS [Concomitant]
     Indication: DIABETES MELLITUS
     Dosage: NIGHTLY
     Route: 058
     Dates: end: 20100219
  22. GUAIFENESIN [Concomitant]
     Indication: PRODUCT USED FOR UNKNOWN INDICATION
     Route: 048
  23. LOPERAMIDE [Concomitant]
     Indication: PRODUCT USED FOR UNKNOWN INDICATION
     Dosage: DAILY PRN
     Route: 048
  24. HYDROXYCHLOROQUINE [Concomitant]
     Indication: PRODUCT USED FOR UNKNOWN INDICATION
     Route: 048
  25. ZOFRAN [Concomitant]
     Indication: PRODUCT USED FOR UNKNOWN INDICATION
     Dosage: EVERY 6H PRN
     Route: 040
  26. ALBUTEROL [Concomitant]
     Indication: PRODUCT USED FOR UNKNOWN INDICATION
     Dosage: NEBULIZED EVERY 2 H PRN
  27. POLYETHYLENE GLYCOL 3350 [Concomitant]
     Indication: PRODUCT USED FOR UNKNOWN INDICATION
     Dosage: 17 G PACKET
     Route: 048
  28. DIATX [Concomitant]
     Indication: PRODUCT USED FOR UNKNOWN INDICATION
     Dates: end: 20100219
  29. VIT E [Concomitant]
     Indication: VITAMIN SUPPLEMENTATION
     Dates: end: 20100219
  30. SILVER SULFADIAZINE [Concomitant]
     Indication: PRODUCT USED FOR UNKNOWN INDICATION
     Dosage: IN HER LEGS
     Route: 061
  31. INSULIN [Concomitant]
     Indication: PRODUCT USED FOR UNKNOWN INDICATION
     Dosage: CORRECTIVE SCALE
  32. HYDROCHLOROTHIAZIDE [Concomitant]
     Indication: PRODUCT USED FOR UNKNOWN INDICATION
     Dates: end: 20100219
  33. LORAZEPAM [Concomitant]
     Indication: PRODUCT USED FOR UNKNOWN INDICATION
     Dosage: NIGHTLY PRN
  34. FERROUS SULFATE TAB [Concomitant]
     Indication: PRODUCT USED FOR UNKNOWN INDICATION
     Route: 048
  35. VANCOMYCIN HCL D5W [Concomitant]
     Indication: PRODUCT USED FOR UNKNOWN INDICATION
     Dosage: GIVEN IN DIALYSIS
     Route: 042
  36. VITAMIN E [Concomitant]
     Indication: PRODUCT USED FOR UNKNOWN INDICATION
     Route: 048
  37. AMITRIPTYLINE [Concomitant]
     Indication: SLEEP DISORDER THERAPY
     Dosage: NIGHTLY
     Route: 048
     Dates: end: 20100219
  38. PERCOCET [Concomitant]
     Indication: PAIN
     Route: 048
     Dates: end: 20100219
  39. PROTONIX [Concomitant]
     Indication: PRODUCT USED FOR UNKNOWN INDICATION
     Route: 048
     Dates: end: 20100219
  40. ACETAMINOPHEN [Concomitant]
     Indication: PRODUCT USED FOR UNKNOWN INDICATION
     Dosage: 4 HR PRN
  41. CALCITONIN SALMON [Concomitant]
     Indication: PRODUCT USED FOR UNKNOWN INDICATION
     Dosage: ONE SPRAY NASAL SPRAY
  42. ASPIRIN [Concomitant]
     Indication: PRODUCT USED FOR UNKNOWN INDICATION
  43. MIDODRINE HYDROCHLORIDE [Concomitant]
     Indication: PRODUCT USED FOR UNKNOWN INDICATION
     Route: 048

REACTIONS (33)
  - MALAISE [None]
  - CLOSTRIDIUM DIFFICILE COLITIS [None]
  - SEPSIS [None]
  - LETHARGY [None]
  - SKIN LESION [None]
  - HYPERTENSION [None]
  - CORONARY ARTERY DISEASE [None]
  - OSTEOMYELITIS [None]
  - EXTREMITY NECROSIS [None]
  - VAGINAL ULCERATION [None]
  - DRUG INEFFECTIVE [None]
  - RESPIRATORY DEPRESSION [None]
  - RESPIRATORY FAILURE [None]
  - WOUND [None]
  - PERIPHERAL ARTERIAL OCCLUSIVE DISEASE [None]
  - DIABETES MELLITUS [None]
  - ESCHERICHIA INFECTION [None]
  - DYSPNOEA [None]
  - RENAL FAILURE CHRONIC [None]
  - ATRIAL FIBRILLATION [None]
  - MYOCARDIAL INFARCTION [None]
  - ENTEROCOCCAL SEPSIS [None]
  - HERPES SIMPLEX [None]
  - THROMBOCYTOPENIA [None]
  - VULVOVAGINAL BURNING SENSATION [None]
  - PYREXIA [None]
  - COUGH [None]
  - DECUBITUS ULCER [None]
  - HYPOTENSION [None]
  - MITRAL VALVE INCOMPETENCE [None]
  - PNEUMONIA [None]
  - VULVOVAGINAL PAIN [None]
  - INCONTINENCE [None]
